FAERS Safety Report 5221502-4 (Version None)
Quarter: 2007Q1

REPORT INFORMATION
  Report Type: 
  Country: None (occurrence: None)
  Receive Date: 20070126
  Receipt Date: 20070117
  Transmission Date: 20070707
  Serious: Yes (Hospitalization)
  Sender: FDA-Public Use
  Company Number: FR-PFIZER INC-2007005541

PATIENT
  Age: 64 Year
  Sex: Female

DRUGS (9)
  1. CELEBREX [Suspect]
     Indication: ARTHRALGIA
     Route: 048
     Dates: start: 20060612, end: 20060719
  2. ERCEFURYL [Concomitant]
     Route: 048
  3. TANAKAN [Concomitant]
     Route: 048
  4. GINKOR [Concomitant]
  5. TAHOR [Concomitant]
     Route: 048
  6. PROTHIADEN [Concomitant]
     Route: 048
  7. ASPIRIN [Concomitant]
     Route: 048
  8. SODIUM CHLORIDE [Concomitant]
     Route: 047
  9. COLPOTROPHINE [Concomitant]
     Route: 061

REACTIONS (4)
  - DERMATITIS BULLOUS [None]
  - ERYTHEMA [None]
  - OEDEMA PERIPHERAL [None]
  - PURPURA [None]
